FAERS Safety Report 18567905 (Version 1)
Quarter: 2020Q4

REPORT INFORMATION
  Report Type: Spontaneous
  Country: US (occurrence: US)
  Receive Date: 20201202
  Receipt Date: 20201202
  Transmission Date: 20210114
  Serious: No
  Sender: FDA-Public Use
  Company Number: US-BRISTOL-MYERS SQUIBB COMPANY-BMS-2020-101093

PATIENT
  Sex: Female
  Weight: 63.9 kg

DRUGS (6)
  1. REMODULIN [Interacting]
     Active Substance: TREPROSTINIL
     Indication: PULMONARY ARTERIAL HYPERTENSION
     Dosage: 2.5 MG/ML
     Route: 065
     Dates: start: 20200930
  2. REMODULIN [Interacting]
     Active Substance: TREPROSTINIL
     Dosage: 0.006 MICROGRAM/KILOGRAM
     Route: 058
     Dates: start: 2020
  3. WARFARIN SODIUM. [Suspect]
     Active Substance: WARFARIN SODIUM
     Indication: PRODUCT USED FOR UNKNOWN INDICATION
     Dosage: UNK
     Route: 065
  4. REMODULIN [Interacting]
     Active Substance: TREPROSTINIL
     Dosage: 0.002 MICROGRAM/KILOGRAM
     Route: 058
     Dates: start: 2020
  5. SILDENAFIL CITRATE. [Concomitant]
     Active Substance: SILDENAFIL CITRATE
     Indication: PRODUCT USED FOR UNKNOWN INDICATION
     Dosage: UNK
     Route: 065
  6. TRACLEER [Concomitant]
     Active Substance: BOSENTAN
     Indication: PRODUCT USED FOR UNKNOWN INDICATION
     Dosage: UNK
     Route: 065

REACTIONS (6)
  - Infusion site pain [Unknown]
  - Infusion site erythema [Unknown]
  - Dizziness [Recovered/Resolved]
  - International normalised ratio increased [Unknown]
  - Drug interaction [Unknown]
  - Infusion site bruising [Unknown]

NARRATIVE: CASE EVENT DATE: 2020
